FAERS Safety Report 9571053 (Version 1)
Quarter: 2013Q4

REPORT INFORMATION
  Report Type: Spontaneous
  Country: US (occurrence: US)
  Receive Date: 20131001
  Receipt Date: 20131001
  Transmission Date: 20140711
  Serious: Yes (Other)
  Sender: FDA-Public Use
  Company Number: US-JNJFOC-20130915724

PATIENT
  Age: 77 Year
  Sex: Female

DRUGS (4)
  1. XARELTO [Suspect]
     Indication: DEEP VEIN THROMBOSIS
     Dosage: STREGNTH: 15 MG
     Route: 048
     Dates: start: 20130920
  2. XARELTO [Suspect]
     Indication: DEEP VEIN THROMBOSIS
     Dosage: STRENGTH: 20 MG
     Route: 048
     Dates: start: 20130819, end: 20130919
  3. EVEROLIMUS [Suspect]
     Indication: NEOPLASM MALIGNANT
     Route: 065
     Dates: end: 20130919
  4. AROMASIN [Suspect]
     Indication: NEOPLASM MALIGNANT
     Route: 065

REACTIONS (1)
  - Thrombocytopenia [Recovering/Resolving]
